APPROVED DRUG PRODUCT: CEPHALOTHIN SODIUM
Active Ingredient: CEPHALOTHIN SODIUM
Strength: EQ 1GM BASE/VIAL
Dosage Form/Route: INJECTABLE;INJECTION
Application: A062547 | Product #001
Applicant: ABBOTT LABORATORIES PHARMACEUTICAL PRODUCTS DIV
Approved: Sep 11, 1985 | RLD: No | RS: No | Type: DISCN